FAERS Safety Report 11359223 (Version 2)
Quarter: 2017Q4

REPORT INFORMATION
  Report Type: Spontaneous
  Country: US (occurrence: US)
  Receive Date: 20150807
  Receipt Date: 20171004
  Transmission Date: 20180320
  Serious: No
  Sender: FDA-Public Use
  Company Number: US-ASTRAZENECA-2015SE73798

PATIENT
  Age: 24542 Day
  Sex: Female
  Weight: 39.9 kg

DRUGS (2)
  1. VERAMYST [Concomitant]
     Active Substance: FLUTICASONE FUROATE
  2. TUDORZA PRESSAIR [Suspect]
     Active Substance: ACLIDINIUM BROMIDE
     Dosage: 400 UG, 1 PUFF TWICE A DAY
     Route: 055
     Dates: start: 20150721

REACTIONS (4)
  - Drug dose omission [Unknown]
  - Thinking abnormal [Unknown]
  - Dyspnoea [Unknown]
  - Device malfunction [Unknown]

NARRATIVE: CASE EVENT DATE: 20150721
